FAERS Safety Report 4339512-8 (Version None)
Quarter: 2004Q2

REPORT INFORMATION
  Report Type: 
  Country: None (occurrence: None)
  Receive Date: 20040412
  Receipt Date: 20040401
  Transmission Date: 20050107
  Serious: Yes (Hospitalization)
  Sender: FDA-Public Use
  Company Number: FR-JNJFOC-20040400326

PATIENT
  Age: 67 Year
  Sex: Female
  Weight: 70 kg

DRUGS (6)
  1. REMICADE [Suspect]
     Indication: RHEUMATOID ARTHRITIS
     Dosage: INTRAVENOUS
     Route: 042
     Dates: start: 20001010, end: 20031022
  2. ACETAMINOPHEN [Suspect]
     Dosage: ORAL
     Route: 048
  3. DIAMICRON (GLICLAZIDE) TABLETS [Suspect]
     Dosage: ORAL
     Route: 048
  4. INDOCIN [Suspect]
     Dosage: ORAL
  5. SOTALOL HCL [Suspect]
     Dosage: 40 MG, 1 IN 1 DAY, ORAL
     Route: 048
  6. HYPERIUM (RILMENIDINE) TABLETS [Suspect]
     Dosage: ORAL
     Route: 048

REACTIONS (3)
  - CONSTIPATION [None]
  - DRUG INTERACTION [None]
  - RECTAL CANCER [None]
